FAERS Safety Report 9022298 (Version 1)
Quarter: 2013Q1

REPORT INFORMATION
  Report Type: Spontaneous
  Country: US (occurrence: US)
  Receive Date: 20130118
  Receipt Date: 20130118
  Transmission Date: 20140127
  Serious: Yes (Hospitalization)
  Sender: FDA-Public Use
  Company Number: US-BAYER-2013-005079

PATIENT
  Age: 26 Year
  Sex: Female

DRUGS (9)
  1. YASMIN [Suspect]
  2. ALKA-SELTZER [ACETYLSALICYLIC ACID,CITRIC ACID,SODIUM BICARBONATE] [Concomitant]
     Indication: DYSPEPSIA
  3. MILK OF MAGNESIA [Concomitant]
     Indication: DYSPEPSIA
  4. PEPCID [Concomitant]
     Indication: DYSPEPSIA
  5. NEXIUM [Concomitant]
     Indication: DYSPEPSIA
  6. ORAL CONTRACEPTIVE NOS [Concomitant]
  7. MEPERGAN [Concomitant]
     Dosage: 50 MG/25 MG 1 TO 2 Q (EVERY) 6 HOURS PRN
     Route: 048
  8. VALIUM [Concomitant]
     Dosage: 5 MG Q 6 HOURS P.R.N
     Route: 048
  9. CEFUROXIME [Concomitant]
     Dosage: 250 MG, BID
     Route: 048

REACTIONS (1)
  - Pulmonary embolism [None]
